FAERS Safety Report 22194352 (Version 2)
Quarter: 2023Q2

REPORT INFORMATION
  Report Type: Spontaneous
  Country: US (occurrence: None)
  Receive Date: 20230411
  Receipt Date: 20230421
  Transmission Date: 20230722
  Serious: Yes (Hospitalization, Other)
  Sender: FDA-Public Use
  Company Number: US-MLMSERVICE-20230327-4191248-2

PATIENT
  Age: 29 Year
  Sex: Male
  Weight: 81.9 kg

DRUGS (13)
  1. METHYLPREDNISOLONE [Suspect]
     Active Substance: METHYLPREDNISOLONE
     Indication: Angioedema
     Route: 042
     Dates: start: 20210930, end: 20211002
  2. PREDNISONE [Suspect]
     Active Substance: PREDNISONE
     Indication: Kaposi^s sarcoma
     Route: 065
     Dates: start: 20211003, end: 20211004
  3. DECADRON [Suspect]
     Active Substance: DEXAMETHASONE
     Indication: Peritonsillar abscess
     Route: 042
     Dates: start: 20210911, end: 20210911
  4. DECADRON [Suspect]
     Active Substance: DEXAMETHASONE
     Indication: Tonsillar exudate
  5. SOLU-MEDROL [Suspect]
     Active Substance: METHYLPREDNISOLONE SODIUM SUCCINATE
     Indication: Evidence based treatment
     Route: 042
     Dates: start: 20211014, end: 20211014
  6. EPINEPHRINE [Concomitant]
     Active Substance: EPINEPHRINE
     Indication: Evidence based treatment
     Route: 030
     Dates: start: 2021
  7. EPINEPHRINE [Concomitant]
     Active Substance: EPINEPHRINE
     Route: 058
  8. DIPHENHYDRAMINE [Concomitant]
     Active Substance: DIPHENHYDRAMINE
     Indication: Evidence based treatment
     Route: 065
     Dates: start: 2021
  9. FAMOTIDINE [Concomitant]
     Active Substance: FAMOTIDINE
     Indication: Evidence based treatment
     Route: 065
     Dates: start: 2021
  10. CLINDAMYCIN [Concomitant]
     Active Substance: CLINDAMYCIN
     Indication: Tonsillar exudate
     Dosage: UNKNOWN
     Route: 065
     Dates: start: 202111
  11. CLINDAMYCIN [Concomitant]
     Active Substance: CLINDAMYCIN
     Indication: Peritonsillar abscess
  12. SULFAMETHOXAZOLE\TRIMETHOPRIM [Concomitant]
     Active Substance: SULFAMETHOXAZOLE\TRIMETHOPRIM
     Indication: Antibiotic prophylaxis
     Dosage: UNKNOWN
     Route: 065
     Dates: start: 2021
  13. EMTRICITABINE, TENOFOVIR ALAFENAMIDE, BICTEGRAVIR [Concomitant]
     Indication: HIV infection
     Dosage: UNKNOWN
     Route: 065
     Dates: start: 2021

REACTIONS (3)
  - Kaposi^s sarcoma [Unknown]
  - Condition aggravated [Unknown]
  - Metastasis [Unknown]
